FAERS Safety Report 7051667-3 (Version None)
Quarter: 2010Q4

REPORT INFORMATION
  Report Type: 
  Country: None (occurrence: None)
  Receive Date: 20101019
  Receipt Date: 20101007
  Transmission Date: 20110411
  Serious: Yes (Life-Threatening)
  Sender: FDA-Public Use
  Company Number: JP-ROCHE-732742

PATIENT
  Age: 72 Year
  Sex: Male

DRUGS (5)
  1. AVASTIN [Suspect]
     Indication: LARGE INTESTINE CARCINOMA
     Route: 041
     Dates: start: 20101004, end: 20101004
  2. ELPLAT [Suspect]
     Indication: LARGE INTESTINE CARCINOMA
     Dosage: DOSAGE IS UNCERTAIN
     Route: 041
     Dates: start: 20101004, end: 20101004
  3. FLUOROURACIL [Suspect]
     Indication: LARGE INTESTINE CARCINOMA
     Dosage: DOSAGE IS UNCERTAIN.
     Route: 040
     Dates: start: 20101004, end: 20101004
  4. FLUOROURACIL [Suspect]
     Dosage: DOSAGE IS UNCERTAIN. FORM : INTRAVENOUS DRIP.
     Route: 040
     Dates: start: 20101004, end: 20101001
  5. LEUCOVORIN CALCIUM [Suspect]
     Indication: LARGE INTESTINE CARCINOMA
     Route: 041
     Dates: start: 20101004, end: 20101001

REACTIONS (2)
  - ATRIAL FIBRILLATION [None]
  - VENTRICULAR FIBRILLATION [None]
